FAERS Safety Report 4705832-8 (Version None)
Quarter: 2005Q2

REPORT INFORMATION
  Report Type: 
  Country: None (occurrence: None)
  Receive Date: 20050629
  Receipt Date: 20050428
  Transmission Date: 20051028
  Serious: No
  Sender: FDA-Public Use
  Company Number: 05P-163-0298872-00

PATIENT
  Age: 78 Year
  Sex: Female

DRUGS (6)
  1. HUMIRA [Suspect]
     Indication: RHEUMATOID ARTHRITIS
     Dosage: 40 MG, 1 IN 2 WK, SUBCUTANEOUS
     Route: 058
     Dates: start: 20030201
  2. LEFLUNOMIDE [Concomitant]
  3. PREDNISONE TAB [Concomitant]
  4. CELECOXIB [Concomitant]
  5. ROSIGLITAZONE MALEATE [Concomitant]
  6. VERAPAMIL HYDROCHLORIDE [Concomitant]

REACTIONS (1)
  - TUBERCULOSIS [None]
